FAERS Safety Report 5110285-4 (Version None)
Quarter: 2006Q3

REPORT INFORMATION
  Report Type: 
  Country: None (occurrence: None)
  Receive Date: 20060919
  Receipt Date: 20060919
  Transmission Date: 20061208
  Serious: Yes (Hospitalization)
  Sender: FDA-Public Use
  Company Number: None

PATIENT
  Sex: Male
  Weight: 90.8101 kg

DRUGS (13)
  1. GEMCITABINE 100MG/ML ELI LILLY [Suspect]
     Indication: PANCREATIC CARCINOMA METASTATIC
     Dosage: 100MG/M2  DAY 1 + 15  IV DRIP
     Route: 041
     Dates: start: 20060720, end: 20060816
  2. CISPLATIN [Suspect]
     Indication: PANCREATIC CARCINOMA METASTATIC
     Dosage: 20MG/M2  DAY 1 + 15  IV DRIP
     Route: 041
     Dates: start: 20060720, end: 20060816
  3. BEVACIZUMAB GENENTECH [Suspect]
     Indication: PANCREATIC CARCINOMA METASTATIC
     Dosage: 10MG/KG  DAY 1 + 15  IV DRIP
     Route: 041
     Dates: start: 20060720, end: 20060816
  4. MS CONTIN [Concomitant]
  5. LASIX [Concomitant]
  6. ALDACTONE [Concomitant]
  7. PREVACID [Concomitant]
  8. SURFACT [Concomitant]
  9. DUCOLAX [Concomitant]
  10. PHENERGRAN [Concomitant]
  11. DILAUDID [Concomitant]
  12. LORAZEPAM [Concomitant]
  13. COMPAZINE [Concomitant]

REACTIONS (5)
  - CHEST PAIN [None]
  - DYSPNOEA [None]
  - MALIGNANT ASCITES [None]
  - PANCREATIC CARCINOMA METASTATIC [None]
  - PYREXIA [None]
